FAERS Safety Report 7637750-X (Version None)
Quarter: 2011Q3

REPORT INFORMATION
  Report Type: 
  Country: None (occurrence: None)
  Receive Date: 20110727
  Receipt Date: 20110715
  Transmission Date: 20111222
  Serious: Yes (Hospitalization)
  Sender: FDA-Public Use
  Company Number: DE-BIOGENIDEC-2011BI019178

PATIENT
  Age: 48 Year
  Sex: Male

DRUGS (4)
  1. ENOXAPARIN SODIUM [Concomitant]
     Route: 058
  2. IBUPROFEN [Concomitant]
  3. OMEPRAZOLE [Concomitant]
  4. TYSABRI [Suspect]
     Indication: MULTIPLE SCLEROSIS
     Route: 042
     Dates: start: 20080701

REACTIONS (1)
  - HUMERUS FRACTURE [None]
